FAERS Safety Report 13581067 (Version 1)
Quarter: 2017Q2

REPORT INFORMATION
  Report Type: Spontaneous
  Country: US (occurrence: US)
  Receive Date: 20170525
  Receipt Date: 20170525
  Transmission Date: 20170830
  Serious: Yes (Disabling)
  Sender: FDA-Public Use
  Company Number: None

PATIENT
  Age: 45 Year
  Sex: Female
  Weight: 56.25 kg

DRUGS (6)
  1. METOPROLOL. [Concomitant]
     Active Substance: METOPROLOL
  2. ESTRIADOL [Concomitant]
     Active Substance: ESTRADIOL
  3. MULTIVITAMIN [Concomitant]
     Active Substance: VITAMINS
  4. LEVOTHYROXIN [Concomitant]
     Active Substance: LEVOTHYROXINE
  5. LEVOFLOXACIN. [Suspect]
     Active Substance: LEVOFLOXACIN
     Indication: SINUSITIS
     Route: 048
     Dates: start: 20170505, end: 20170511
  6. OMEPRAZOLE. [Concomitant]
     Active Substance: OMEPRAZOLE

REACTIONS (7)
  - Muscle spasms [None]
  - Paraesthesia [None]
  - Abdominal pain [None]
  - Myalgia [None]
  - Tendon pain [None]
  - Reflux gastritis [None]
  - Burning sensation [None]

NARRATIVE: CASE EVENT DATE: 20170512
